FAERS Safety Report 5578638-8 (Version None)
Quarter: 2008Q1

REPORT INFORMATION
  Report Type: 
  Country: None (occurrence: None)
  Receive Date: 20080102
  Receipt Date: 20071225
  Transmission Date: 20080703
  Serious: Yes (Death, Hospitalization)
  Sender: FDA-Public Use
  Company Number: JP-JNJFOC-20071205060

PATIENT
  Sex: Female
  Weight: 40 kg

DRUGS (42)
  1. REMICADE [Suspect]
     Route: 042
  2. REMICADE [Suspect]
     Route: 042
  3. REMICADE [Suspect]
     Route: 042
  4. REMICADE [Suspect]
     Route: 042
  5. REMICADE [Suspect]
     Route: 042
  6. REMICADE [Suspect]
     Route: 042
  7. REMICADE [Suspect]
     Route: 042
  8. REMICADE [Suspect]
     Route: 042
  9. REMICADE [Suspect]
     Route: 042
  10. REMICADE [Suspect]
     Route: 042
  11. REMICADE [Suspect]
     Route: 042
  12. REMICADE [Suspect]
     Route: 042
  13. REMICADE [Suspect]
     Route: 042
  14. REMICADE [Suspect]
     Route: 042
  15. REMICADE [Suspect]
     Route: 042
  16. REMICADE [Suspect]
     Indication: RHEUMATOID ARTHRITIS
     Route: 042
  17. RHEUMATREX [Concomitant]
     Route: 048
  18. RHEUMATREX [Concomitant]
     Route: 048
  19. RHEUMATREX [Concomitant]
     Route: 048
  20. RHEUMATREX [Concomitant]
     Indication: RHEUMATOID ARTHRITIS
     Route: 048
  21. ISCOTIN [Concomitant]
     Indication: ANTIBIOTIC PROPHYLAXIS
     Route: 048
  22. DEPAS [Concomitant]
     Route: 048
  23. PREDNISOLONE [Concomitant]
     Route: 048
  24. PREDNISOLONE [Concomitant]
     Route: 048
  25. PREDNISOLONE [Concomitant]
     Route: 048
  26. PREDNISOLONE [Concomitant]
     Route: 048
  27. PREDNISOLONE [Concomitant]
     Route: 048
  28. PREDNISOLONE [Concomitant]
     Route: 048
  29. PREDNISOLONE [Concomitant]
     Route: 048
  30. PREDNISOLONE [Concomitant]
     Indication: RHEUMATOID ARTHRITIS
     Route: 048
  31. VOLTAREN [Concomitant]
     Indication: RHEUMATOID ARTHRITIS
     Route: 054
  32. FOLIAMIN [Concomitant]
     Route: 048
  33. BONALON [Concomitant]
     Route: 048
  34. TAKEPRON [Concomitant]
     Route: 048
  35. ASPIRIN [Concomitant]
     Route: 048
  36. AMOBAN [Concomitant]
     Dosage: DOE=1 TAB
     Route: 048
  37. ROCALTROL [Concomitant]
     Route: 048
  38. GLYSENNID [Concomitant]
     Route: 048
  39. ADRENAL HORMONE PREPARATIONS [Concomitant]
     Indication: RHEUMATOID ARTHRITIS
  40. ADETPHOS [Concomitant]
     Indication: DIZZINESS
     Route: 048
  41. MERISLON [Concomitant]
     Indication: DIZZINESS
     Route: 048
  42. MS ONSHIPPU [Concomitant]
     Indication: BACK PAIN

REACTIONS (3)
  - DYSPHAGIA [None]
  - GLIOBLASTOMA [None]
  - PNEUMONIA ASPIRATION [None]
